FAERS Safety Report 4667394-3 (Version None)
Quarter: 2005Q2

REPORT INFORMATION
  Report Type: 
  Country: None (occurrence: None)
  Receive Date: 20050519
  Receipt Date: 20050519
  Transmission Date: 20051028
  Serious: Yes (Hospitalization)
  Sender: FDA-Public Use
  Company Number: None

PATIENT
  Age: 57 Year
  Sex: Male
  Weight: 112.9 kg

DRUGS (12)
  1. ZOCOR [Suspect]
  2. METFORMIN HCL [Concomitant]
  3. GLIPIZIDE [Concomitant]
  4. IRBESARTAN [Concomitant]
  5. LOPERAMIDE HCL [Concomitant]
  6. MULTI-VITAMIN [Concomitant]
  7. GUAIFENESIN [Concomitant]
  8. ASPIRIN [Concomitant]
  9. ACETAMINOPHEN [Concomitant]
  10. DIPHENOXYLATE HCL + ATROPINE SULFATE [Concomitant]
  11. IPRATROPIUM BR [Concomitant]
  12. AMOXICILLIN 500/CLAV K [Concomitant]

REACTIONS (1)
  - RHABDOMYOLYSIS [None]
